FAERS Safety Report 9312638 (Version 1)
Quarter: 2013Q2

REPORT INFORMATION
  Report Type: Spontaneous
  Country: GB (occurrence: GB)
  Receive Date: 20130528
  Receipt Date: 20130528
  Transmission Date: 20140414
  Serious: Yes (Other)
  Sender: FDA-Public Use
  Company Number: GB-TEVA-407627ISR

PATIENT
  Age: 51 Year
  Sex: Male
  Weight: 80 kg

DRUGS (1)
  1. MIRTAZAPINE [Suspect]
     Dates: start: 20130411

REACTIONS (2)
  - Restless legs syndrome [Recovered/Resolved]
  - Myalgia [Recovered/Resolved]
